FAERS Safety Report 14133921 (Version 2)
Quarter: 2017Q4

REPORT INFORMATION
  Report Type: Spontaneous
  Country: US (occurrence: US)
  Receive Date: 20171027
  Receipt Date: 20171106
  Transmission Date: 20180321
  Serious: No
  Sender: FDA-Public Use
  Company Number: US-PFIZER INC-2017463178

PATIENT
  Age: 62 Year
  Sex: Female

DRUGS (2)
  1. IBRANCE [Suspect]
     Active Substance: PALBOCICLIB
     Indication: BREAST CANCER
     Dosage: 100 MG, CYCLIC, (1 CAPSULE DAILY 1 - 21/DAYS)
     Route: 048
     Dates: start: 20171014
  2. IBRANCE [Suspect]
     Active Substance: PALBOCICLIB
     Dosage: 100 MG, CYCLIC (DAYS 1-21 OF 28 DAYS)
     Route: 048
     Dates: start: 20171014

REACTIONS (7)
  - Dizziness [Unknown]
  - Fatigue [Unknown]
  - Epistaxis [Unknown]
  - Cough [Unknown]
  - Vomiting [Unknown]
  - Blood glucose increased [Unknown]
  - White blood cell count decreased [Unknown]
